FAERS Safety Report 21352471 (Version 1)
Quarter: 2022Q3

REPORT INFORMATION
  Report Type: Spontaneous
  Country: US (occurrence: None)
  Receive Date: 20220920
  Receipt Date: 20220920
  Transmission Date: 20221026
  Serious: No
  Sender: FDA-Public Use
  Company Number: 2022A317681

PATIENT
  Age: 60 Year
  Sex: Male

DRUGS (1)
  1. FASENRA [Suspect]
     Active Substance: BENRALIZUMAB
     Indication: Product used for unknown indication
     Dosage: 30.0MG UNKNOWN
     Route: 057
     Dates: start: 202204

REACTIONS (5)
  - Chronic obstructive pulmonary disease [Unknown]
  - Contusion [Unknown]
  - Chest X-ray abnormal [Unknown]
  - Injection site reaction [Unknown]
  - Device delivery system issue [Unknown]

NARRATIVE: CASE EVENT DATE: 20220911
